FAERS Safety Report 23769008 (Version 1)
Quarter: 2024Q2

REPORT INFORMATION
  Report Type: Spontaneous
  Country: JP (occurrence: JP)
  Receive Date: 20240422
  Receipt Date: 20240422
  Transmission Date: 20240716
  Serious: Yes (Other)
  Sender: FDA-Public Use
  Company Number: JP-DAIICHI SANKYO, INC.-DSJ-2024-117416

PATIENT
  Age: 76 Year
  Sex: Male

DRUGS (1)
  1. EDOXABAN TOSYLATE [Suspect]
     Active Substance: EDOXABAN TOSYLATE
     Indication: Product used for unknown indication
     Dosage: 60MG/DAY
     Route: 065

REACTIONS (1)
  - Subarachnoid haemorrhage [Unknown]
